FAERS Safety Report 16313284 (Version 2)
Quarter: 2020Q2

REPORT INFORMATION
  Report Type: Report from Study
  Country: US (occurrence: US)
  Receive Date: 20190515
  Receipt Date: 20200406
  Transmission Date: 20200713
  Serious: Yes (Hospitalization, Other)
  Sender: FDA-Public Use
  Company Number: US-AMGEN-USASP2019074920

PATIENT
  Sex: Female

DRUGS (2)
  1. ENBREL [Suspect]
     Active Substance: ETANERCEPT
     Indication: RHEUMATOID ARTHRITIS
     Dosage: 50 MILLIGRAM, QWK
     Route: 065
  2. ENBREL [Suspect]
     Active Substance: ETANERCEPT
     Dosage: 50 MILLIGRAM, QWK
     Route: 065

REACTIONS (15)
  - Weight decreased [Recovering/Resolving]
  - Asthenia [Not Recovered/Not Resolved]
  - Dyspnoea [Unknown]
  - Chronic obstructive pulmonary disease [Unknown]
  - Discomfort [Unknown]
  - Kidney infection [Recovered/Resolved]
  - Rash [Recovering/Resolving]
  - Limb deformity [Unknown]
  - Fall [Unknown]
  - Intentional product misuse [Unknown]
  - Contusion [Unknown]
  - Wrist fracture [Unknown]
  - Back pain [Unknown]
  - Feeling abnormal [Unknown]
  - Limb injury [Unknown]

NARRATIVE: CASE EVENT DATE: 2017
